FAERS Safety Report 5616169-7 (Version None)
Quarter: 2008Q1

REPORT INFORMATION
  Report Type: 
  Country: None (occurrence: None)
  Receive Date: 20080201
  Receipt Date: 20080125
  Transmission Date: 20080703
  Serious: Yes (Other)
  Sender: FDA-Public Use
  Company Number: 2007EU002630

PATIENT
  Age: 61 Year
  Sex: Female
  Weight: 59 kg

DRUGS (4)
  1. SOLIFENACIN(SOLIFENACIN) TABLET, 5MG [Suspect]
     Indication: INCONTINENCE
     Dosage: 5 MG, UID/QD, ORAL
     Route: 048
     Dates: start: 20070404, end: 20071026
  2. ADCAL-D3 (COLECALCIFEROL) [Concomitant]
  3. SALAMOL (SALBUTAMOL SULFATE) [Concomitant]
  4. SERETIDE (SALMETEROL XINAFOATE) [Concomitant]

REACTIONS (4)
  - DYSARTHRIA [None]
  - HEADACHE [None]
  - MENTAL IMPAIRMENT [None]
  - MICTURITION DISORDER [None]
